FAERS Safety Report 10171200 (Version 1)
Quarter: 2014Q2

REPORT INFORMATION
  Report Type: Spontaneous
  Country: DK (occurrence: None)
  Receive Date: 20140512
  Receipt Date: 20140512
  Transmission Date: 20141212
  Serious: Yes (Death, Hospitalization)
  Sender: FDA-Public Use
  Company Number: 2014P1003810

PATIENT
  Age: 33 Year
  Sex: Male

DRUGS (4)
  1. AMPHETAMINE [Suspect]
  2. METHAMPHETAMINE [Suspect]
  3. METHADONE (UNSPECIFIED) [Concomitant]
  4. UNSPECIFIED OPIATES [Concomitant]

REACTIONS (11)
  - Drug abuse [None]
  - Loss of consciousness [None]
  - Cerebral infarction [None]
  - Demyelination [None]
  - Brain oedema [None]
  - Cerebral haemorrhage [None]
  - Hepatic steatosis [None]
  - Renal ischaemia [None]
  - Bronchopneumonia [None]
  - Central nervous system necrosis [None]
  - Multi-organ failure [None]
